FAERS Safety Report 9468792 (Version 2)
Quarter: 2013Q3

REPORT INFORMATION
  Report Type: Spontaneous
  Country: US (occurrence: None)
  Receive Date: 20130814
  Receipt Date: 20130826
  Transmission Date: 20140515
  Serious: Yes (Other)
  Sender: FDA-Public Use
  Company Number: US-ALKEM-000120

PATIENT
  Age: 35 Year
  Sex: Female
  Weight: 113 kg

DRUGS (9)
  1. QUETIAPINE (QUETIAPINE) [Suspect]
     Indication: PRODUCT USED FOR UNKNOWN INDICATION
  2. PROPOFOL (PROPOFOL) [Suspect]
     Indication: ANAESTHESIA
     Route: 042
  3. FENTANYL(FENTANYL) [Concomitant]
  4. SUCCINYLCHOLINE(SUCCINYLCHOLINE) [Concomitant]
  5. LIDOCAINE(LIDOCAINE) [Concomitant]
  6. LAMOTRIGINE(LAMOTRIGINE) [Concomitant]
  7. MIDAZOLAM(MIDAZOLAM) [Concomitant]
  8. VENLAFAXINE(VENLAFAXINE) [Concomitant]
  9. DESFLURANE(DESFLURANE) [Concomitant]

REACTIONS (2)
  - Hypotension [None]
  - Drug interaction [None]
